FAERS Safety Report 4650335-2 (Version None)
Quarter: 2005Q2

REPORT INFORMATION
  Report Type: 
  Country: None (occurrence: None)
  Receive Date: 20050429
  Receipt Date: 20050420
  Transmission Date: 20051028
  Serious: Yes (Hospitalization)
  Sender: FDA-Public Use
  Company Number: 2005-BP-06485BP

PATIENT
  Sex: Female

DRUGS (2)
  1. CATAPRES [Suspect]
     Indication: HYPERTENSION
     Dosage: 0.2 MG (5 MG, ONE PATCH Q WEEK), TO
     Route: 061
  2. NIFEDIPINE [Concomitant]

REACTIONS (6)
  - CARDIOMYOPATHY [None]
  - CARDIOVASCULAR DISORDER [None]
  - CONSTIPATION [None]
  - MYOCARDIAL INFARCTION [None]
  - PHARMACEUTICAL PRODUCT COMPLAINT [None]
  - STRESS [None]
